FAERS Safety Report 11787495 (Version 7)
Quarter: 2020Q3

REPORT INFORMATION
  Report Type: Report from Study
  Country: US (occurrence: US)
  Receive Date: 20151130
  Receipt Date: 20200908
  Transmission Date: 20201102
  Serious: Yes (Hospitalization, Other)
  Sender: FDA-Public Use
  Company Number: US-SA-2015SA178388

PATIENT

DRUGS (1)
  1. ALEMTUZUMAB [Suspect]
     Active Substance: ALEMTUZUMAB
     Indication: MULTIPLE SCLEROSIS
     Dosage: 12 MG,QD
     Route: 041
     Dates: start: 20151012, end: 20151016

REACTIONS (20)
  - Gallbladder rupture [Recovered/Resolved]
  - Pain [Recovered/Resolved]
  - Hospitalisation [Recovered/Resolved]
  - Feeling hot [Recovered/Resolved]
  - Blood count abnormal [Unknown]
  - Skin lesion [Recovered/Resolved]
  - Rash macular [Not Recovered/Not Resolved]
  - Erythema [Not Recovered/Not Resolved]
  - Sepsis [Recovered/Resolved]
  - Fungal skin infection [Not Recovered/Not Resolved]
  - Haemorrhage [Recovering/Resolving]
  - Cholecystitis infective [Recovered/Resolved]
  - Heart rate increased [Unknown]
  - Fungal infection [Not Recovered/Not Resolved]
  - Dysuria [Unknown]
  - Skin disorder [Recovered/Resolved]
  - Rash erythematous [Recovered/Resolved]
  - Feeling hot [Not Recovered/Not Resolved]
  - Genital infection fungal [Not Recovered/Not Resolved]
  - Skin mass [Unknown]

NARRATIVE: CASE EVENT DATE: 2015
